FAERS Safety Report 9753786 (Version 1)
Quarter: 2013Q4

REPORT INFORMATION
  Report Type: Spontaneous
  Country: US (occurrence: US)
  Receive Date: 20131213
  Receipt Date: 20131213
  Transmission Date: 20140711
  Serious: No
  Sender: FDA-Public Use
  Company Number: US-GILEAD-2010-0027088

PATIENT
  Sex: Female

DRUGS (16)
  1. LETAIRIS [Suspect]
     Indication: PULMONARY ARTERIAL HYPERTENSION
     Route: 048
     Dates: start: 20090624
  2. SPIRONOLACTONE [Concomitant]
  3. XALATAN [Concomitant]
  4. PROZAC [Concomitant]
  5. NEXIUM [Concomitant]
  6. SYNTHROID [Concomitant]
  7. METFORMIN [Concomitant]
  8. COZAAR [Concomitant]
  9. KLOR-CON [Concomitant]
  10. FUROSEMIDE [Concomitant]
  11. LOTREL [Concomitant]
  12. TOPROL XL [Concomitant]
  13. TRICOR [Concomitant]
  14. VYTORIN [Concomitant]
  15. PLAVIX [Concomitant]
  16. VITAMIN B 12 [Concomitant]

REACTIONS (1)
  - Anaemia [Recovering/Resolving]
